FAERS Safety Report 6255286-8 (Version None)
Quarter: 2009Q3

REPORT INFORMATION
  Report Type: 
  Country: None (occurrence: None)
  Receive Date: 20090702
  Receipt Date: 20090623
  Transmission Date: 20100115
  Serious: Yes (Other)
  Sender: FDA-Public Use
  Company Number: PHEH2009US05874

PATIENT
  Sex: Male

DRUGS (9)
  1. EXELON [Suspect]
     Dosage: 4.6 MG, UNK
     Route: 062
     Dates: end: 20090617
  2. ROXICODONE [Concomitant]
  3. METHADONE [Concomitant]
  4. LISINOPRIL [Concomitant]
  5. ROPINIROLE [Concomitant]
  6. DEPAKOTE [Concomitant]
  7. MIRALAX [Concomitant]
  8. MULTI-VITAMINS [Concomitant]
  9. CALCIUM [Concomitant]

REACTIONS (3)
  - GLOSSODYNIA [None]
  - SWOLLEN TONGUE [None]
  - VITAMIN B12 DECREASED [None]
